FAERS Safety Report 8825293 (Version 1)
Quarter: 2012Q4

REPORT INFORMATION
  Report Type: 
  Country: FR (occurrence: FR)
  Receive Date: 20121004
  Receipt Date: 20121004
  Transmission Date: 20130627
  Serious: Yes (Death)
  Sender: FDA-Public Use
  Company Number: FR-009507513-1210FRA001584

PATIENT
  Age: 49 Year
  Sex: Male
  Weight: 61 kg

DRUGS (30)
  1. EMEND [Suspect]
     Dosage: UNK mg, UNK
     Dates: start: 20120206, end: 20120208
  2. EMEND [Suspect]
     Dosage: 125 mg, UNK
     Route: 048
     Dates: start: 20120307, end: 20120307
  3. EMEND [Suspect]
     Dosage: 80 mg, UNK
     Route: 048
     Dates: start: 20120308, end: 20120309
  4. EMEND [Suspect]
     Dosage: 125 mg, UNK
     Route: 048
     Dates: start: 20120402, end: 20120402
  5. EMEND [Suspect]
     Dosage: 80 mg, UNK
     Route: 048
     Dates: start: 20120403, end: 20120404
  6. CISPLATIN [Suspect]
     Dosage: 136 mg, Once
     Route: 042
     Dates: start: 20120206, end: 20120206
  7. CISPLATIN [Suspect]
     Dosage: 88 mg, Once
     Route: 042
     Dates: start: 20120307
  8. CISPLATIN [Suspect]
     Dosage: 88 mg, Once
     Dates: start: 20120402
  9. FLUOROURACIL [Concomitant]
     Dosage: 6750 mg, Once
     Route: 042
     Dates: start: 20120206
  10. FLUOROURACIL [Concomitant]
     Dosage: 2625 UNK, UNK
     Dates: start: 20120402
  11. TAXOTERE [Concomitant]
     Dosage: 136 mg, Once
     Route: 042
     Dates: start: 20120206
  12. SOLUPRED [Concomitant]
     Dosage: 20 mg, bid
     Dates: start: 20120206
  13. DUROGESIC [Concomitant]
     Dosage: UNK
     Route: 048
     Dates: start: 20120206
  14. ACTISKENAN [Concomitant]
  15. PANTOPRAZOLE [Concomitant]
     Dosage: UNK
     Dates: start: 201111, end: 20120229
  16. DOMPERIDONE [Concomitant]
     Dosage: UNK
     Dates: start: 201111
  17. LANZOR [Concomitant]
     Dosage: UNK
     Dates: start: 20120229, end: 201203
  18. TIORFAN [Concomitant]
     Dosage: UNK
     Dates: start: 20120229
  19. LOVENOX [Concomitant]
     Dosage: UNK
     Dates: start: 20120229, end: 20120314
  20. ARIXTRA [Concomitant]
     Dosage: UNK
     Dates: start: 20120314, end: 20120329
  21. CIPROFLOXACIN RANBAXY [Concomitant]
     Dosage: UNK
     Dates: start: 20120228, end: 20120308
  22. XYZALL [Concomitant]
     Dosage: UNK
     Dates: start: 20120302
  23. BETAMETHASONE [Concomitant]
     Dosage: UNK
     Dates: start: 20120302
  24. ZOPHREN (ONDANSETRON) [Concomitant]
     Dosage: 8 mg, Once
     Route: 042
     Dates: start: 20120307
  25. ZOPHREN (ONDANSETRON) [Concomitant]
     Dosage: 8 mg, Once
     Route: 042
     Dates: start: 20120402
  26. METHYLPREDNISOLONE [Concomitant]
     Dosage: 120 mg, Once
     Dates: start: 20120307
  27. METHYLPREDNISOLONE [Concomitant]
     Dosage: 120 mg, Once
     Dates: start: 20120402
  28. NEULASTA [Concomitant]
     Dosage: 6 mg, Once
     Dates: start: 20120401
  29. ZARZIO [Concomitant]
     Dosage: UNK
     Dates: start: 20120210
  30. SPECIAFOLDINE [Concomitant]
     Indication: BLOOD FOLATE DECREASED
     Dosage: UNK

REACTIONS (1)
  - Febrile bone marrow aplasia [Fatal]
